FAERS Safety Report 7412499-7 (Version None)
Quarter: 2011Q2

REPORT INFORMATION
  Report Type: 
  Country: None (occurrence: None)
  Receive Date: 20110413
  Receipt Date: 20110410
  Transmission Date: 20111010
  Serious: Yes (Death)
  Sender: FDA-Public Use
  Company Number: VN-ABBOTT-11P-087-0709641-00

PATIENT
  Age: 16 Year
  Sex: Male
  Weight: 45 kg

DRUGS (1)
  1. SEVOFLURANE [Suspect]
     Indication: APPENDICECTOMY
     Dosage: 1.5 - 2%
     Dates: start: 20110302, end: 20110302

REACTIONS (3)
  - HYPOTENSION [None]
  - HYPERTHERMIA MALIGNANT [None]
  - CARDIAC ARREST [None]
